FAERS Safety Report 22062179 (Version 1)
Quarter: 2023Q1

REPORT INFORMATION
  Report Type: Spontaneous
  Country: CA (occurrence: None)
  Receive Date: 20230304
  Receipt Date: 20230304
  Transmission Date: 20230417
  Serious: Yes (Other)
  Sender: FDA-Public Use
  Company Number: CA-ROCHE-3296034

PATIENT
  Age: 43 Year
  Sex: Female

DRUGS (4)
  1. AVASTIN [Suspect]
     Active Substance: BEVACIZUMAB
     Indication: Cervix carcinoma
     Route: 065
  2. CARBOPLATIN [Concomitant]
     Active Substance: CARBOPLATIN
  3. TAXOL [Concomitant]
     Active Substance: PACLITAXEL
  4. KEYTRUDA [Concomitant]
     Active Substance: PEMBROLIZUMAB

REACTIONS (3)
  - Lymphadenopathy [Unknown]
  - Premature menopause [Unknown]
  - Hypothyroidism [Unknown]
